FAERS Safety Report 7655999-7 (Version None)
Quarter: 2011Q3

REPORT INFORMATION
  Report Type: 
  Country: None (occurrence: None)
  Receive Date: 20110804
  Receipt Date: 20110725
  Transmission Date: 20111222
  Serious: Yes (Hospitalization)
  Sender: FDA-Public Use
  Company Number: US-JNJFOC-20110711991

PATIENT
  Sex: Female
  Weight: 46 kg

DRUGS (3)
  1. HUMIRA [Concomitant]
     Dates: start: 20080906
  2. REMICADE [Suspect]
     Indication: CROHN'S DISEASE
     Route: 042
     Dates: start: 20041224, end: 20060606
  3. HUMIRA [Concomitant]
     Indication: PRODUCT USED FOR UNKNOWN INDICATION
     Dates: start: 20110220

REACTIONS (1)
  - PNEUMONIA [None]
